FAERS Safety Report 10508549 (Version 1)
Quarter: 2014Q4

REPORT INFORMATION
  Report Type: Report from Study
  Country: US (occurrence: US)
  Receive Date: 20141009
  Receipt Date: 20141009
  Transmission Date: 20150528
  Serious: Yes (Other)
  Sender: FDA-Public Use
  Company Number: US-ALEXION PHARMACEUTICALS INC-A200800780

PATIENT

DRUGS (1)
  1. SOLIRIS [Suspect]
     Active Substance: ECULIZUMAB
     Indication: PAROXYSMAL NOCTURNAL HAEMOGLOBINURIA

REACTIONS (11)
  - Haemoglobin decreased [Unknown]
  - Haemolysis [Unknown]
  - Packed red blood cell transfusion [Unknown]
  - Body temperature increased [Unknown]
  - Haemoglobinuria [Unknown]
  - Quality of life decreased [Unknown]
  - Pharyngitis streptococcal [Unknown]
  - Drug hypersensitivity [Unknown]
  - Fatigue [Unknown]
  - Pruritus [Unknown]
  - Biopsy bone marrow [Unknown]

NARRATIVE: CASE EVENT DATE: 20080728
